FAERS Safety Report 10653208 (Version 3)
Quarter: 2015Q1

REPORT INFORMATION
  Report Type: Spontaneous
  Country: US (occurrence: US)
  Receive Date: 20141215
  Receipt Date: 20150213
  Transmission Date: 20150720
  Serious: Yes (Other)
  Sender: FDA-Public Use
  Company Number: US-GILEAD-2014-0126593

PATIENT
  Age: 57 Year
  Sex: Female

DRUGS (1)
  1. LETAIRIS [Suspect]
     Active Substance: AMBRISENTAN
     Indication: PRODUCT USED FOR UNKNOWN INDICATION
     Dosage: 5 MG, QD
     Route: 065
     Dates: start: 20110831

REACTIONS (13)
  - Pain [Unknown]
  - Gastric disorder [Unknown]
  - Thyroid cancer [Unknown]
  - Cardiac pacemaker insertion [Unknown]
  - Drug dose omission [Unknown]
  - Anaemia [Unknown]
  - Inappropriate schedule of drug administration [Unknown]
  - Dizziness [Unknown]
  - Dyspnoea [Unknown]
  - Dyspnoea exertional [Unknown]
  - Neoplasm malignant [Unknown]
  - Nerve compression [Unknown]
  - Weight decreased [Unknown]

NARRATIVE: CASE EVENT DATE: 201412
